FAERS Safety Report 7829910-X (Version None)
Quarter: 2011Q4

REPORT INFORMATION
  Report Type: 
  Country: None (occurrence: None)
  Receive Date: 20111021
  Receipt Date: 20101222
  Transmission Date: 20120403
  Serious: Yes (Other)
  Sender: FDA-Public Use
  Company Number: JP-BAYER-200915021BYL

PATIENT
  Age: 29 Year
  Sex: Female

DRUGS (19)
  1. SEDIEL [Concomitant]
     Indication: INSOMNIA
     Dosage: 10 MG (DAILY DOSE), , ORAL
     Route: 048
     Dates: start: 20011129, end: 20040724
  2. MARZULENE S [Concomitant]
  3. ZOLPIDEM [Concomitant]
  4. LAXOBERON [Concomitant]
     Indication: CONSTIPATION
     Route: 048
     Dates: start: 20010208
  5. TIZANIDINE HCL [Concomitant]
  6. SEDIEL [Concomitant]
  7. MARZULENE S [Concomitant]
     Indication: NAUSEA
     Dosage: 1.5 G (DAILY DOSE), , ORAL
     Route: 048
     Dates: start: 19970327
  8. BETASERON [Suspect]
     Dosage: 4 MIU, QOD
     Route: 058
     Dates: start: 20030405, end: 20030709
  9. ZOLPIDEM [Concomitant]
     Indication: INSOMNIA
     Dosage: 5 MG (DAILY DOSE), , ORAL
     Route: 048
     Dates: start: 20021203
  10. IBRUPROFEN [Concomitant]
  11. LECICARBON [Concomitant]
  12. BETASERON [Suspect]
     Dosage: 6 MIU
     Route: 058
     Dates: start: 20040101
  13. IBRUPROFEN [Concomitant]
     Indication: PROPHYLAXIS
     Dosage: 200 MG (DAILY DOSE), , ORAL
     Route: 048
     Dates: start: 20030320
  14. TIZANIDINE HCL [Concomitant]
     Indication: SPASTIC PARALYSIS
     Dosage: 3 MG (DAILY DOSE), , ORAL
     Route: 048
     Dates: start: 19970327
  15. PREDNISOLONE [Concomitant]
     Dosage: DAILY DOSE 60 MG
     Route: 065
     Dates: start: 20021025, end: 20021205
  16. BETASERON [Suspect]
     Indication: RELAPSING-REMITTING MULTIPLE SCLEROSIS
     Dosage: 8 MIU, QOD
     Route: 058
     Dates: start: 20030320, end: 20030404
  17. LAXOBERON [Concomitant]
  18. LECICARBON [Concomitant]
     Indication: CONSTIPATION
     Dosage: 1 DF (DAILY DOSE), , ORAL
     Route: 048
     Dates: start: 19980309
  19. BETASERON [Suspect]
     Dosage: 6 MIU, QOD
     Route: 058
     Dates: start: 20030710, end: 20040122

REACTIONS (6)
  - LYMPHOCYTE COUNT DECREASED [None]
  - ARTHRALGIA [None]
  - SJOGREN'S SYNDROME [None]
  - RHEUMATOID ARTHRITIS [None]
  - BASEDOW'S DISEASE [None]
  - PYREXIA [None]
